FAERS Safety Report 8844578 (Version 3)
Quarter: 2013Q2

REPORT INFORMATION
  Report Type: Spontaneous
  Country: US (occurrence: US)
  Receive Date: 20121017
  Receipt Date: 20130514
  Transmission Date: 20140414
  Serious: Yes (Other)
  Sender: FDA-Public Use
  Company Number: US-BAYER-2012-106756

PATIENT
  Age: 30 Year
  Sex: Female
  Weight: 57.6 kg

DRUGS (2)
  1. MIRENA [Suspect]
     Indication: CONTRACEPTION
     Dosage: 20 MCG/24HR, CONT
     Route: 015
     Dates: start: 20121005, end: 20121005
  2. MIRENA [Suspect]
     Indication: MENORRHAGIA

REACTIONS (5)
  - Uterine perforation [Recovered/Resolved]
  - Post procedural discomfort [Recovered/Resolved]
  - Abdominal pain [Recovered/Resolved]
  - Abdominal pain lower [Recovered/Resolved]
  - Device dislocation [None]
